FAERS Safety Report 9157182 (Version 2)
Quarter: 2013Q3

REPORT INFORMATION
  Report Type: Spontaneous
  Country: GR (occurrence: GR)
  Receive Date: 20130312
  Receipt Date: 20130930
  Transmission Date: 20140515
  Serious: Yes (Other)
  Sender: FDA-Public Use
  Company Number: GR-B.I. PHARMACEUTICALS,INC./RIDGEFIELD-2013-BI-06266GB

PATIENT
  Age: 60 Year
  Sex: Male

DRUGS (4)
  1. PRADAXA [Suspect]
     Indication: CEREBROVASCULAR ACCIDENT PROPHYLAXIS
     Dosage: 220 MG
     Route: 048
  2. PRADAXA [Suspect]
     Indication: ATRIAL FIBRILLATION
  3. LIPITOR / ATORVASTATIN CALCIUM TRIHYDRATE [Concomitant]
     Indication: HYPERLIPIDAEMIA
  4. LOPRESOR / METOPROLOL [Concomitant]
     Indication: HYPERTENSION
     Dosage: 50 MG

REACTIONS (1)
  - Cerebrovascular accident [Recovered/Resolved]
